FAERS Safety Report 25887851 (Version 1)
Quarter: 2025Q4

REPORT INFORMATION
  Report Type: Spontaneous
  Country: LB (occurrence: LB)
  Receive Date: 20251007
  Receipt Date: 20251007
  Transmission Date: 20260117
  Serious: Yes (Hospitalization)
  Sender: AMGEN
  Company Number: LB-AMGEN-LBNSP2025195690

PATIENT
  Age: 42 Year
  Sex: Female

DRUGS (4)
  1. FILGRASTIM [Suspect]
     Active Substance: FILGRASTIM
     Indication: Febrile neutropenia
     Dosage: 300 MICROGRAM, QD
     Route: 065
  2. FILGRASTIM [Suspect]
     Active Substance: FILGRASTIM
     Dosage: 300 MICROGRAM, BID
     Route: 065
  3. CYTARABINE [Concomitant]
     Active Substance: CYTARABINE
     Indication: Chemotherapy
     Dosage: UNK, 7 + 3 REGIMEN, CONSISTING OF CYTARABINE ADMINISTERED CONTINUOUSLY FOR 7 DAYS, 4 CYCLES
  4. DAUNORUBICIN [Concomitant]
     Active Substance: DAUNORUBICIN
     Indication: Chemotherapy
     Dosage: UNK, GIVEN THE FIRST 3 DAYS

REACTIONS (1)
  - Hyperbilirubinaemia [Recovering/Resolving]
